FAERS Safety Report 14927963 (Version 11)
Quarter: 2021Q2

REPORT INFORMATION
  Report Type: Report from Study
  Country: US (occurrence: US)
  Receive Date: 20180523
  Receipt Date: 20210630
  Transmission Date: 20210716
  Serious: Yes (Other)
  Sender: FDA-Public Use
  Company Number: US-JAZZ-JPI-P-033674

PATIENT
  Sex: Female
  Weight: 63.64 kg

DRUGS (8)
  1. HONOKIOL [Concomitant]
     Indication: PRODUCT USED FOR UNKNOWN INDICATION
  2. XYREM [Suspect]
     Active Substance: SODIUM OXYBATE
     Dosage: 4.5 GRAM, BID
     Route: 048
     Dates: start: 2011, end: 2017
  3. XANAX [Suspect]
     Active Substance: ALPRAZOLAM
     Indication: ANXIETY
  4. XANAX [Suspect]
     Active Substance: ALPRAZOLAM
     Indication: SOCIAL ANXIETY DISORDER
  5. XYREM [Suspect]
     Active Substance: SODIUM OXYBATE
     Indication: NARCOLEPSY
     Dosage: 2.25 GRAM, BID
     Route: 048
     Dates: start: 20090626, end: 200907
  6. XYREM [Suspect]
     Active Substance: SODIUM OXYBATE
     Dosage: UNKNOWN DOSE
     Route: 048
     Dates: start: 200907, end: 2011
  7. CANNABINOL [Concomitant]
     Active Substance: CANNABINOL
     Indication: PRODUCT USED FOR UNKNOWN INDICATION
  8. XYREM [Suspect]
     Active Substance: SODIUM OXYBATE
     Dosage: 4 GRAM, BID
     Route: 048
     Dates: start: 2017

REACTIONS (18)
  - Social anxiety disorder [Unknown]
  - Enuresis [Unknown]
  - Anxiety [Unknown]
  - Hallucinations, mixed [Unknown]
  - Intentional product use issue [Unknown]
  - Disability [Unknown]
  - Gastrointestinal haemorrhage [Recovering/Resolving]
  - Unresponsive to stimuli [Unknown]
  - Drug dependence [Unknown]
  - Hypoaesthesia [Unknown]
  - Suicide attempt [Unknown]
  - Migraine [Unknown]
  - Photophobia [Recovering/Resolving]
  - Myoclonus [Unknown]
  - Dizziness [Recovering/Resolving]
  - Panic attack [Not Recovered/Not Resolved]
  - Suicidal ideation [Not Recovered/Not Resolved]
  - Depression [Unknown]

NARRATIVE: CASE EVENT DATE: 2012
